FAERS Safety Report 4959013-3 (Version None)
Quarter: 2006Q1

REPORT INFORMATION
  Report Type: 
  Country: None (occurrence: None)
  Receive Date: 20060324
  Receipt Date: 20060307
  Transmission Date: 20060701
  Serious: No
  Sender: FDA-Public Use
  Company Number: US200601005166

PATIENT
  Age: 51 Year
  Sex: Male
  Weight: 111.1 kg

DRUGS (1)
  1. ZYPREXA [Suspect]
     Indication: BIPOLAR DISORDER
     Dosage: 2.5 MG; SEE IMAGE
     Dates: start: 20001030

REACTIONS (6)
  - ARTHRALGIA [None]
  - DIABETES MELLITUS NON-INSULIN-DEPENDENT [None]
  - DYSURIA [None]
  - HAEMATURIA [None]
  - HYPERCHOLESTEROLAEMIA [None]
  - WEIGHT INCREASED [None]
